FAERS Safety Report 9893480 (Version 1)
Quarter: 2014Q1

REPORT INFORMATION
  Report Type: Not Available
  Country: GB (occurrence: GB)
  Receive Date: 20140213
  Receipt Date: 20140213
  Transmission Date: 20141002
  Serious: Yes (Other)
  Sender: FDA-Public Use
  Company Number: GB-ASTELLAS-2014EU001160

PATIENT
  Sex: Female

DRUGS (2)
  1. YM178 [Suspect]
     Dosage: UNK
     Route: 065
  2. JAKAFI [Interacting]
     Dosage: UNK
     Route: 065

REACTIONS (3)
  - Drug interaction [Unknown]
  - Hypersensitivity [Unknown]
  - Urinary tract infection [Unknown]
